FAERS Safety Report 16077485 (Version 3)
Quarter: 2019Q2

REPORT INFORMATION
  Report Type: Report from Study
  Country: US (occurrence: US)
  Receive Date: 20190315
  Receipt Date: 20190403
  Transmission Date: 20190711
  Serious: Yes (Other)
  Sender: FDA-Public Use
  Company Number: US-OTSUKA-2018_018500

PATIENT
  Age: 46 Year
  Sex: Female

DRUGS (5)
  1. TOLVAPTAN [Suspect]
     Active Substance: TOLVAPTAN
     Dosage: 15 MG, QD (IN EVENING) (FOR 2 WEEKS)
     Route: 048
     Dates: start: 20180620, end: 20180715
  2. TOLVAPTAN [Suspect]
     Active Substance: TOLVAPTAN
     Dosage: UNK
     Route: 065
  3. TOLVAPTAN [Suspect]
     Active Substance: TOLVAPTAN
     Indication: CONGENITAL CYSTIC KIDNEY DISEASE
     Dosage: 45 MG, QD (IN MORNING) (FOR 2 WEEKS)
     Route: 048
     Dates: start: 20180620, end: 20180715
  4. TOLVAPTAN [Suspect]
     Active Substance: TOLVAPTAN
     Dosage: 15 MG, BID (FOR 2 DAYS)
     Route: 065
     Dates: start: 20190115
  5. TOLVAPTAN [Suspect]
     Active Substance: TOLVAPTAN
     Dosage: 15 MG, QOD
     Route: 065
     Dates: start: 20190130, end: 20190301

REACTIONS (17)
  - Infectious mononucleosis [Unknown]
  - Blood urea increased [Unknown]
  - Nocturia [Recovered/Resolved]
  - Polydipsia [Recovered/Resolved]
  - Fatigue [Unknown]
  - Migraine [Recovered/Resolved]
  - Abdominal pain [Unknown]
  - Urine output increased [Unknown]
  - Renal impairment [Unknown]
  - Asthenia [Unknown]
  - Dehydration [Recovered/Resolved]
  - Drug intolerance [Unknown]
  - Insomnia [Unknown]
  - Hypokalaemia [Unknown]
  - Dysuria [Unknown]
  - Malaise [Not Recovered/Not Resolved]
  - Incorrect dose administered [Unknown]

NARRATIVE: CASE EVENT DATE: 20180621
